FAERS Safety Report 4846047-2 (Version None)
Quarter: 2005Q4

REPORT INFORMATION
  Report Type: 
  Country: None (occurrence: None)
  Receive Date: 20051130
  Receipt Date: 20051124
  Transmission Date: 20060501
  Serious: Yes (Hospitalization, Other)
  Sender: FDA-Public Use
  Company Number: FRWYE096028OCT05

PATIENT
  Age: 44 Year
  Sex: Female

DRUGS (1)
  1. EFFEXOR [Suspect]
     Indication: DEPRESSION
     Dosage: 150 MG DAILY
     Route: 048
     Dates: start: 20050501, end: 20050826

REACTIONS (17)
  - ANTINUCLEAR ANTIBODY POSITIVE [None]
  - ANTIPHOSPHOLIPID ANTIBODIES POSITIVE [None]
  - ARTHRALGIA [None]
  - BACK PAIN [None]
  - BLOOD ALKALINE PHOSPHATASE INCREASED [None]
  - CULTURE THROAT POSITIVE [None]
  - DRUG ERUPTION [None]
  - DYSPHAGIA [None]
  - DYSPHONIA [None]
  - EYELID OEDEMA [None]
  - GAMMA-GLUTAMYLTRANSFERASE INCREASED [None]
  - LOCALISED OEDEMA [None]
  - LYMPHADENOPATHY [None]
  - NASOPHARYNGEAL DISORDER [None]
  - OROPHARYNGEAL SWELLING [None]
  - SALIVARY HYPERSECRETION [None]
  - SWELLING FACE [None]
